FAERS Safety Report 24245919 (Version 1)
Quarter: 2024Q3

REPORT INFORMATION
  Report Type: Spontaneous
  Country: FR (occurrence: FR)
  Receive Date: 20240824
  Receipt Date: 20240824
  Transmission Date: 20241016
  Serious: Yes (Death, Other)
  Sender: JAZZ
  Company Number: None

PATIENT

DRUGS (2)
  1. ZEPZELCA [Suspect]
     Active Substance: LURBINECTEDIN
     Indication: Small cell lung cancer metastatic
     Dosage: 3.2 MILLIGRAM, Q3W
     Route: 042
     Dates: start: 202307, end: 202307
  2. TOPOTECAN HYDROCHLORIDE [Suspect]
     Active Substance: TOPOTECAN HYDROCHLORIDE
     Indication: Small cell lung cancer metastatic
     Dosage: 12 MILLIGRAM, Q3W
     Route: 042
     Dates: start: 20230703, end: 202307

REACTIONS (1)
  - Idiopathic pulmonary fibrosis [Fatal]
